FAERS Safety Report 7828564-6 (Version None)
Quarter: 2011Q4

REPORT INFORMATION
  Report Type: 
  Country: None (occurrence: None)
  Receive Date: 20111020
  Receipt Date: 20111020
  Transmission Date: 20120403
  Serious: Yes (Hospitalization)
  Sender: FDA-Public Use
  Company Number: None

PATIENT
  Age: 72 Year
  Sex: Male
  Weight: 91.172 kg

DRUGS (1)
  1. CUBICIN [Suspect]
     Indication: CELLULITIS STAPHYLOCOCCAL
     Dosage: 600MG
     Route: 042
     Dates: start: 20110924, end: 20111013

REACTIONS (3)
  - CELLULITIS STAPHYLOCOCCAL [None]
  - PNEUMONIA [None]
  - PNEUMONITIS [None]
